FAERS Safety Report 8594572 (Version 6)
Quarter: 2013Q2

REPORT INFORMATION
  Report Type: Spontaneous
  Country: US (occurrence: US)
  Receive Date: 20120604
  Receipt Date: 20130516
  Transmission Date: 20140414
  Serious: Yes (Death, Hospitalization)
  Sender: FDA-Public Use
  Company Number: US-GLAXOSMITHKLINE-A0979726A

PATIENT
  Age: 59 Year
  Sex: Female

DRUGS (13)
  1. FLOLAN [Suspect]
     Indication: PULMONARY ARTERIAL HYPERTENSION
     Dosage: 35.7NGKM CONTINUOUS
     Route: 042
     Dates: start: 20021001
  2. TRACLEER [Concomitant]
  3. ASPIRIN [Concomitant]
  4. TORSEMIDE [Concomitant]
  5. TRAMADOL [Concomitant]
  6. POTASSIUM [Concomitant]
  7. PREDNISONE [Concomitant]
  8. ONDANSETRON [Concomitant]
  9. FLONASE [Concomitant]
  10. OMEPRAZOLE [Concomitant]
  11. EUCERIN [Concomitant]
  12. OCEAN NASAL SPRAY [Concomitant]
  13. ROBITUSSIN DM [Concomitant]

REACTIONS (12)
  - Death [Fatal]
  - Pneumonia [Unknown]
  - Head injury [Unknown]
  - Respiratory distress [Unknown]
  - Grand mal convulsion [Unknown]
  - Hypoxia [Unknown]
  - Tracheostomy [Unknown]
  - Contusion [Unknown]
  - Muscular weakness [Unknown]
  - Fall [Unknown]
  - Limb injury [Unknown]
  - Mechanical ventilation [Unknown]
